FAERS Safety Report 5830919-6 (Version None)
Quarter: 2008Q3

REPORT INFORMATION
  Report Type: 
  Country: None (occurrence: None)
  Receive Date: 20080801
  Receipt Date: 20080204
  Transmission Date: 20090109
  Serious: No
  Sender: FDA-Public Use
  Company Number: US-BRISTOL-MYERS SQUIBB COMPANY-14063440

PATIENT
  Age: 75 Year
  Sex: Male

DRUGS (11)
  1. COUMADIN [Suspect]
     Indication: ATRIAL FIBRILLATION
     Dosage: 1 DOSAGE FORM = 2.5MG 2 DAYS/WEEK AND 5MG 5 DAYS/WEEK.
     Route: 048
     Dates: start: 20080125
  2. TYLENOL [Concomitant]
  3. ASPIRIN [Concomitant]
  4. HYDRALAZINE HCL [Concomitant]
  5. ISOSORBIDE DINITRATE [Concomitant]
  6. LASIX [Concomitant]
  7. METOPROLOL [Concomitant]
  8. MICONAZOLE NITRATE + TINIDAZOLE [Concomitant]
  9. SULAR [Concomitant]
  10. NITROGLYCERIN [Concomitant]
  11. POTASSIUM CHLORIDE [Concomitant]

REACTIONS (1)
  - BLUE TOE SYNDROME [None]
